FAERS Safety Report 8475822-0 (Version None)
Quarter: 2012Q2

REPORT INFORMATION
  Report Type: 
  Country: None (occurrence: None)
  Receive Date: 20120628
  Receipt Date: 20120619
  Transmission Date: 20120825
  Serious: Yes (Hospitalization)
  Sender: FDA-Public Use
  Company Number: US-ASTRAZENECA-2012SE41410

PATIENT
  Age: 51 Year
  Sex: Female

DRUGS (2)
  1. OMEPRAZOLE [Suspect]
     Route: 048
  2. PRILOSEC OTC [Suspect]
     Dosage: TWICEA DAY
     Route: 048

REACTIONS (9)
  - GASTROOESOPHAGEAL REFLUX DISEASE [None]
  - NAUSEA [None]
  - DRUG INEFFECTIVE [None]
  - BLISTER [None]
  - VOMITING [None]
  - DYSPHAGIA [None]
  - PRURITUS GENERALISED [None]
  - THROAT IRRITATION [None]
  - GASTRIC DISORDER [None]
